FAERS Safety Report 6722837-6 (Version None)
Quarter: 2010Q2

REPORT INFORMATION
  Report Type: 
  Country: None (occurrence: None)
  Receive Date: 20100512
  Receipt Date: 20100512
  Transmission Date: 20101027
  Serious: Yes (Hospitalization)
  Sender: FDA-Public Use
  Company Number: None

PATIENT
  Sex: Male
  Weight: 6.17 kg

DRUGS (2)
  1. VIGABATRIN [Suspect]
     Indication: CEREBRAL PALSY
     Dosage: 150 MG BID PO
     Route: 048
     Dates: start: 20090315, end: 20100323
  2. VIGABATRIN [Suspect]
     Indication: QUADRIPARESIS
     Dosage: 150 MG BID PO
     Route: 048
     Dates: start: 20090315, end: 20100323

REACTIONS (2)
  - DYSTONIA [None]
  - OPISTHOTONUS [None]
